FAERS Safety Report 24615066 (Version 2)
Quarter: 2024Q4

REPORT INFORMATION
  Report Type: Spontaneous
  Country: AT (occurrence: AT)
  Receive Date: 20241113
  Receipt Date: 20241223
  Transmission Date: 20250115
  Serious: Yes (Other)
  Sender: TEVA
  Company Number: AT-SANDOZ-SDZ2024AT087366

PATIENT
  Sex: Female

DRUGS (1)
  1. HYDROCHLOROTHIAZIDE\VALSARTAN [Suspect]
     Active Substance: HYDROCHLOROTHIAZIDE\VALSARTAN
     Indication: Product used for unknown indication
     Dosage: UNK (VALSARTAN HCT 1A 160MG 12,5 MG)
     Route: 065

REACTIONS (4)
  - Foreign body in throat [Unknown]
  - Product solubility abnormal [Unknown]
  - Dyspnoea [Unknown]
  - Dysphagia [Unknown]
